FAERS Safety Report 4893764-4 (Version None)
Quarter: 2006Q1

REPORT INFORMATION
  Report Type: 
  Country: None (occurrence: None)
  Receive Date: 20060127
  Receipt Date: 20050909
  Transmission Date: 20060701
  Serious: Yes (Hospitalization)
  Sender: FDA-Public Use
  Company Number: GBWYE302622DEC04

PATIENT
  Sex: Female
  Weight: 72 kg

DRUGS (12)
  1. ENBREL [Suspect]
     Indication: RHEUMATOID ARTHRITIS
     Route: 058
     Dates: start: 20040416
  2. PREDNISOLONE [Concomitant]
     Route: 065
  3. OMEPRAZOLE [Concomitant]
     Route: 065
  4. PARACETAMOL [Concomitant]
     Route: 065
  5. CALCICHEW [Concomitant]
     Route: 065
  6. DICLOFENAC [Concomitant]
     Route: 065
  7. FERROUS SULFATE TAB [Concomitant]
     Route: 065
  8. DIHYDROCODEINE [Concomitant]
     Route: 065
  9. GAVISCON [Concomitant]
     Route: 065
  10. HYDROXOCOBALAMIN [Concomitant]
     Route: 065
  11. AMITRIPTYLINE HCL [Concomitant]
     Route: 065
  12. VENTOLIN [Concomitant]
     Route: 065

REACTIONS (3)
  - HERPES ZOSTER [None]
  - OSTEOPOROSIS [None]
  - PERONEAL NERVE PALSY [None]
